FAERS Safety Report 7265289-2 (Version None)
Quarter: 2011Q1

REPORT INFORMATION
  Report Type: 
  Country: None (occurrence: None)
  Receive Date: 20110131
  Receipt Date: 20110127
  Transmission Date: 20110831
  Serious: Yes (Other)
  Sender: FDA-Public Use
  Company Number: AU-PFIZER INC-2011018934

PATIENT
  Age: 69 Year
  Sex: Female

DRUGS (2)
  1. XANAX [Suspect]
     Indication: ANXIETY
     Dosage: UNK
  2. ZOFRAN [Suspect]
     Dosage: UNK

REACTIONS (1)
  - TARDIVE DYSKINESIA [None]
